FAERS Safety Report 7016988-9 (Version None)
Quarter: 2010Q3

REPORT INFORMATION
  Report Type: 
  Country: None (occurrence: None)
  Receive Date: 20100927
  Receipt Date: 20100926
  Transmission Date: 20110219
  Serious: Yes (Other)
  Sender: FDA-Public Use
  Company Number: US-PFIZER INC-2010019246

PATIENT
  Sex: Female
  Weight: 53 kg

DRUGS (9)
  1. NAPROXEN [Suspect]
     Indication: BACK PAIN
     Dosage: TANEZUMAB/PLACEBO: EVERY 8 WEEKS
     Route: 042
     Dates: start: 20091014, end: 20091209
  2. BLINDED *NO SUBJECT DRUG [Suspect]
     Indication: BACK PAIN
     Dosage: TANEZUMAB/PLACEBO: EVERY 8 WEEKS
     Route: 042
     Dates: start: 20091014, end: 20091209
  3. BLINDED *PLACEBO [Suspect]
     Indication: BACK PAIN
     Dosage: TANEZUMAB/PLACEBO: EVERY 8 WEEKS
     Route: 042
     Dates: start: 20091014, end: 20091209
  4. BLINDED PF-04383119 [Suspect]
     Indication: BACK PAIN
     Dosage: TANEZUMAB/PLACEBO: EVERY 8 WEEKS
     Route: 042
     Dates: start: 20091014, end: 20091209
  5. NAPROXEN [Suspect]
     Dosage: NAPROXEN/PLACEBO, 2X/DAY
     Route: 048
     Dates: start: 20091014
  6. BLINDED *NO SUBJECT DRUG [Suspect]
     Dosage: NAPROXEN/PLACEBO, 2X/DAY
     Route: 048
     Dates: start: 20091014
  7. BLINDED *PLACEBO [Suspect]
     Dosage: NAPROXEN/PLACEBO, 2X/DAY
     Route: 048
     Dates: start: 20091014
  8. BLINDED PF-04383119 [Suspect]
     Dosage: NAPROXEN/PLACEBO, 2X/DAY
     Route: 048
     Dates: start: 20091014
  9. DEPO-PROVERA [Suspect]
     Indication: CONTRACEPTION
     Dosage: UNK
     Route: 030
     Dates: start: 20080101

REACTIONS (2)
  - DRUG INEFFECTIVE [None]
  - UNINTENDED PREGNANCY [None]
